FAERS Safety Report 8263376-3 (Version None)
Quarter: 2012Q2

REPORT INFORMATION
  Report Type: 
  Country: None (occurrence: None)
  Receive Date: 20120405
  Receipt Date: 20120329
  Transmission Date: 20120825
  Serious: Yes (Hospitalization)
  Sender: FDA-Public Use
  Company Number: US-ABBOTT-12P-163-0920253-00

PATIENT
  Sex: Male
  Weight: 99.88 kg

DRUGS (8)
  1. MULTIPLE VITAMINS [Concomitant]
     Indication: VITAMIN SUPPLEMENTATION
  2. KLONOPIN [Concomitant]
     Indication: DEPRESSION
  3. HUMIRA [Suspect]
     Indication: CROHN'S DISEASE
     Dates: start: 20110101, end: 20111201
  4. CELEXA [Concomitant]
     Indication: DEPRESSION
  5. DESIPRAMINE HCL [Concomitant]
     Indication: PAIN
  6. IRON [Concomitant]
     Indication: MINERAL SUPPLEMENTATION
  7. HUMIRA [Suspect]
     Dates: start: 20111201
  8. VITAMIN D [Concomitant]
     Indication: VITAMIN SUPPLEMENTATION

REACTIONS (4)
  - CROHN'S DISEASE [None]
  - PYREXIA [None]
  - WEIGHT DECREASED [None]
  - ABDOMINAL PAIN [None]
